FAERS Safety Report 7354150-0 (Version None)
Quarter: 2011Q1

REPORT INFORMATION
  Report Type: 
  Country: None (occurrence: None)
  Receive Date: 20110316
  Receipt Date: 20110308
  Transmission Date: 20110831
  Serious: Yes (Hospitalization)
  Sender: FDA-Public Use
  Company Number: JP-AMGEN-JPNSP2011012206

PATIENT
  Age: 69 Year
  Sex: Female
  Weight: 59.6 kg

DRUGS (15)
  1. ENBREL [Suspect]
     Dosage: 25 MG, 2X/WEEK
     Route: 058
     Dates: start: 20090622, end: 20110131
  2. PREDNISOLONE [Concomitant]
     Indication: RHEUMATOID ARTHRITIS
     Dosage: 3MG AM + 4MG PM, DAILY
     Route: 048
     Dates: start: 20040507
  3. MAG-LAX [Concomitant]
     Indication: CONSTIPATION
     Dosage: 990 MG, 2X/DAY
     Route: 048
     Dates: start: 20040507
  4. FOLIAMIN [Concomitant]
     Indication: PROPHYLAXIS
     Dosage: 5 MG, WEEKLY
     Route: 048
     Dates: start: 20081023
  5. GLIMICRON [Concomitant]
     Indication: DIABETES MELLITUS
     Dosage: 40 MG, 1X/DAY
     Route: 048
     Dates: start: 20040507
  6. TAKEPRON [Concomitant]
     Indication: REFLUX OESOPHAGITIS
     Dosage: 15 MG, 1X/DAY
     Route: 048
     Dates: start: 20051110
  7. FOSAMAC [Concomitant]
     Indication: OSTEOPOROSIS
     Dosage: 35 MG, WEEKLY
     Route: 048
     Dates: start: 20071004
  8. GASLON [Concomitant]
     Indication: GASTRIC ULCER
     Dosage: 2 MG, 2X/DAY
     Route: 048
     Dates: start: 20040507
  9. RHEUMATREX [Concomitant]
     Indication: RHEUMATOID ARTHRITIS
     Dosage: 8 MG, QWK
     Route: 048
     Dates: start: 20040507
  10. ENBREL [Suspect]
     Dosage: 25 MG, 2X/WEEK
     Route: 058
     Dates: start: 20090528, end: 20090619
  11. DICLOFENAC SODIUM [Concomitant]
     Indication: RHEUMATOID ARTHRITIS
     Dosage: 37.5 MG, 2X/DAY
     Route: 048
     Dates: start: 20040507
  12. ENBREL [Suspect]
     Indication: RHEUMATOID ARTHRITIS
     Dosage: 50 MG, UNK
     Route: 058
     Dates: start: 20090528
  13. SODIUM ALGINATE [Concomitant]
     Indication: GASTRIC ULCER
     Dosage: 20 ML, 3X/DAY
     Route: 048
     Dates: start: 20040507
  14. MYSLEE [Concomitant]
     Indication: INSOMNIA
     Dosage: 5 MG, 1X/DAY
     Route: 048
     Dates: start: 20041021
  15. ONE-ALPHA [Concomitant]
     Indication: OSTEOPOROSIS
     Dosage: 1.0 UG, 1X/DAY
     Route: 048
     Dates: start: 20100826

REACTIONS (1)
  - TRANSITIONAL CELL CARCINOMA [None]
